FAERS Safety Report 8305510-2 (Version None)
Quarter: 2012Q2

REPORT INFORMATION
  Report Type: 
  Country: None (occurrence: None)
  Receive Date: 20120423
  Receipt Date: 20120418
  Transmission Date: 20120825
  Serious: Yes (Hospitalization)
  Sender: FDA-Public Use
  Company Number: JP-GLAXOSMITHKLINE-B0785248A

PATIENT
  Sex: Male

DRUGS (7)
  1. SELEGILINE HCL [Concomitant]
     Indication: PARKINSON'S DISEASE
     Dosage: 5MG PER DAY
     Route: 048
     Dates: end: 20120307
  2. REQUIP [Concomitant]
     Indication: PARKINSON'S DISEASE
     Dosage: 3MG PER DAY
     Route: 048
     Dates: end: 20120307
  3. CARBIDOPA [Concomitant]
     Indication: PARKINSON'S DISEASE
     Route: 048
     Dates: end: 20120308
  4. UNKNOWN [Concomitant]
     Indication: URINARY INCONTINENCE
     Dosage: 6MG PER DAY
     Route: 048
     Dates: end: 20120227
  5. LENDEM [Concomitant]
     Indication: INSOMNIA
     Dosage: .25MG PER DAY
     Route: 048
     Dates: end: 20120227
  6. PAXIL [Suspect]
     Indication: PRODUCT USED FOR UNKNOWN INDICATION
     Dosage: 20MG PER DAY
     Route: 048
     Dates: end: 20120101
  7. SELEGILINE HYDROCHLORIDE [Concomitant]
     Route: 048

REACTIONS (6)
  - HALLUCINATION [None]
  - EUPHORIC MOOD [None]
  - HALLUCINATION, VISUAL [None]
  - ABNORMAL BEHAVIOUR [None]
  - RESTLESSNESS [None]
  - DELUSION [None]
